FAERS Safety Report 11367425 (Version 1)
Quarter: 2015Q3

REPORT INFORMATION
  Report Type: Spontaneous
  Country: US (occurrence: US)
  Receive Date: 20150811
  Receipt Date: 20150811
  Transmission Date: 20151125
  Serious: No
  Sender: FDA-Public Use
  Company Number: US-ELI_LILLY_AND_COMPANY-US201201008944

PATIENT
  Age: 46 Year
  Sex: Male
  Weight: 46.26 kg

DRUGS (1)
  1. AXIRON [Suspect]
     Active Substance: TESTOSTERONE
     Indication: BLOOD TESTOSTERONE DECREASED
     Dosage: 30 MG, EVERY MORNING, VIA AXILLARY ROUTE
     Route: 062
     Dates: start: 20110808, end: 20120103

REACTIONS (2)
  - Hidradenitis [Unknown]
  - Hidradenitis [Recovered/Resolved]

NARRATIVE: CASE EVENT DATE: 20110808
